FAERS Safety Report 4500349-8 (Version None)
Quarter: 2004Q4

REPORT INFORMATION
  Report Type: 
  Country: None (occurrence: None)
  Receive Date: 20041112
  Receipt Date: 20041109
  Transmission Date: 20050328
  Serious: Yes (Life-Threatening, Hospitalization)
  Sender: FDA-Public Use
  Company Number: AU-MERCK-0411AUS00097

PATIENT
  Sex: Male

DRUGS (5)
  1. VIOXX [Suspect]
     Indication: ARTHRITIS
     Route: 048
     Dates: start: 20000101
  2. CLOPIDOGREL BISULFATE [Concomitant]
     Route: 065
     Dates: start: 20021101
  3. IRBESARTAN [Concomitant]
     Route: 065
     Dates: start: 20021105
  4. IRBESARTAN [Concomitant]
     Route: 065
  5. METOPROLOL [Concomitant]
     Route: 065
     Dates: start: 20021101

REACTIONS (1)
  - AORTIC VALVE DISEASE [None]
